FAERS Safety Report 6165585-6 (Version None)
Quarter: 2009Q2

REPORT INFORMATION
  Report Type: 
  Country: None (occurrence: None)
  Receive Date: 20090423
  Receipt Date: 20090414
  Transmission Date: 20091009
  Serious: Yes (Other)
  Sender: FDA-Public Use
  Company Number: ES-PFIZER INC-2009198773

PATIENT

DRUGS (4)
  1. LYRICA [Suspect]
     Indication: INTERVERTEBRAL DISC PROTRUSION
     Dosage: UNKNOWN
     Route: 048
  2. FORTECORTIN [Suspect]
     Dosage: UNK
     Dates: end: 20090401
  3. TRAMADOL HCL [Concomitant]
  4. RIVOTRIL [Concomitant]
     Dosage: UNK
     Dates: end: 20090401

REACTIONS (5)
  - DRY SKIN [None]
  - EYE SWELLING [None]
  - LOCAL SWELLING [None]
  - SKIN EXFOLIATION [None]
  - SWELLING FACE [None]
